FAERS Safety Report 8445569-5 (Version None)
Quarter: 2012Q2

REPORT INFORMATION
  Report Type: 
  Country: None (occurrence: None)
  Receive Date: 20120618
  Receipt Date: 20120608
  Transmission Date: 20120825
  Serious: Yes (Other)
  Sender: FDA-Public Use
  Company Number: CA-SP-2011-03477

PATIENT

DRUGS (2)
  1. IMOGAM RABIES PASTEURIZED [Suspect]
     Indication: IMMUNISATION
     Dosage: ONCE
     Route: 030
     Dates: start: 20110607, end: 20110607
  2. TUBERSOL [Suspect]
     Indication: TUBERCULIN TEST
     Dosage: ONCE
     Route: 050
     Dates: start: 20110607, end: 20110607

REACTIONS (7)
  - PARAESTHESIA [None]
  - MYALGIA [None]
  - FATIGUE [None]
  - BURNING SENSATION [None]
  - PAIN IN EXTREMITY [None]
  - SENSATION OF HEAVINESS [None]
  - HEADACHE [None]
